FAERS Safety Report 6317462-5 (Version None)
Quarter: 2009Q3

REPORT INFORMATION
  Report Type: 
  Country: None (occurrence: None)
  Receive Date: 20090821
  Receipt Date: 20090811
  Transmission Date: 20100115
  Serious: Yes (Other)
  Sender: FDA-Public Use
  Company Number: BR-RANBAXY-2009R5-26435

PATIENT

DRUGS (1)
  1. MINOCYCLINE HCL [Suspect]
     Indication: ABDOMINAL INJURY
     Dosage: 100 MG, QD
     Route: 048
     Dates: start: 20090810

REACTIONS (3)
  - ABDOMINAL PAIN [None]
  - HAEMATOCHEZIA [None]
  - HAEMATURIA [None]
